FAERS Safety Report 22590975 (Version 1)
Quarter: 2023Q2

REPORT INFORMATION
  Report Type: Spontaneous
  Country: US (occurrence: US)
  Receive Date: 20230612
  Receipt Date: 20230612
  Transmission Date: 20230721
  Serious: No
  Sender: FDA-Public Use
  Company Number: US-MYLANLABS-2023M1046936

PATIENT
  Sex: Male

DRUGS (1)
  1. METHYLPHENIDATE [Suspect]
     Active Substance: METHYLPHENIDATE
     Indication: Product used for unknown indication
     Dosage: 1.6 MILLIGRAM, QH (DELIVERS 15 MG OVER 9 HOURS )
     Route: 062

REACTIONS (2)
  - Wrong technique in device usage process [Unknown]
  - Product adhesion issue [Unknown]
